FAERS Safety Report 20186355 (Version 1)
Quarter: 2021Q4

REPORT INFORMATION
  Report Type: Spontaneous
  Country: US (occurrence: US)
  Receive Date: 20211215
  Receipt Date: 20211215
  Transmission Date: 20220303
  Serious: No
  Sender: FDA-Public Use
  Company Number: US-RECKITT BENCKISER HEALTHCARE INT LIMITED-RB-81621-2021

PATIENT
  Age: 63 Year
  Sex: Male

DRUGS (1)
  1. DELSYM [Suspect]
     Active Substance: DEXTROMETHORPHAN
     Indication: Cough
     Dosage: UNK (PATIENT DRANK ONE FOURTH OF THE PRODUCT DIRECT FROM THE BOTTLE)
     Route: 048
     Dates: start: 20201215

REACTIONS (3)
  - Feeling drunk [Recovering/Resolving]
  - Accidental overdose [Recovering/Resolving]
  - Dizziness [Recovering/Resolving]

NARRATIVE: CASE EVENT DATE: 20201215
